FAERS Safety Report 7443114-4 (Version None)
Quarter: 2011Q2

REPORT INFORMATION
  Report Type: 
  Country: None (occurrence: None)
  Receive Date: 20110428
  Receipt Date: 20110419
  Transmission Date: 20111010
  Serious: Yes (Hospitalization, Other)
  Sender: FDA-Public Use
  Company Number: FR-ABBOTT-11P-056-0720389-00

PATIENT
  Sex: Male
  Weight: 54 kg

DRUGS (7)
  1. PLAVIX [Suspect]
     Indication: PRODUCT USED FOR UNKNOWN INDICATION
     Route: 048
     Dates: start: 20110201, end: 20110308
  2. TAHOR [Concomitant]
     Indication: PRODUCT USED FOR UNKNOWN INDICATION
     Route: 048
     Dates: start: 20110201
  3. KARDEGIC [Concomitant]
     Indication: PRODUCT USED FOR UNKNOWN INDICATION
     Route: 048
     Dates: start: 20110201
  4. TRANDOLAPRIL [Suspect]
     Indication: HYPERTENSION
     Route: 048
     Dates: start: 20110201, end: 20110308
  5. NITROGLYCERIN [Concomitant]
     Indication: PRODUCT USED FOR UNKNOWN INDICATION
     Route: 060
     Dates: start: 20110201
  6. OMACOR [Concomitant]
     Indication: PRODUCT USED FOR UNKNOWN INDICATION
     Route: 048
     Dates: start: 20110201
  7. CARDENSIEL [Concomitant]
     Indication: PRODUCT USED FOR UNKNOWN INDICATION
     Route: 048
     Dates: start: 20110201

REACTIONS (4)
  - THROMBOCYTOPENIC PURPURA [None]
  - CHEST PAIN [None]
  - MYOCARDIAL INFARCTION [None]
  - SENSE OF OPPRESSION [None]
